FAERS Safety Report 20837378 (Version 1)
Quarter: 2022Q2

REPORT INFORMATION
  Report Type: Spontaneous
  Country: US (occurrence: US)
  Receive Date: 20220517
  Receipt Date: 20220517
  Transmission Date: 20220720
  Serious: No
  Sender: FDA-Public Use
  Company Number: US-BRISTOL-MYERS SQUIBB COMPANY-2022-033828

PATIENT
  Age: 76 Year
  Sex: Male

DRUGS (1)
  1. POMALYST [Suspect]
     Active Substance: POMALIDOMIDE
     Indication: Plasma cell myeloma
     Dosage: DOSE: 2 MILLIGRAM, FREQ: DAILY 21 DAYS ON AND 7 DAYS OFF^
     Route: 048
     Dates: start: 20220418

REACTIONS (4)
  - Fatigue [Unknown]
  - Pruritus [Unknown]
  - Pruritus [Unknown]
  - Weight increased [Unknown]
